FAERS Safety Report 4446516-3 (Version None)
Quarter: 2004Q3

REPORT INFORMATION
  Report Type: 
  Country: None (occurrence: None)
  Receive Date: 20040902
  Receipt Date: 20040825
  Transmission Date: 20050211
  Serious: Yes (Death)
  Sender: FDA-Public Use
  Company Number: 2004JP001504

PATIENT
  Age: 60 Year
  Sex: Female

DRUGS (4)
  1. PROGRAF [Suspect]
     Indication: LIVER TRANSPLANT
     Dates: start: 20030119, end: 20030208
  2. PROGRAF [Suspect]
     Indication: LIVER TRANSPLANT
     Dates: start: 20030228, end: 20030719
  3. CYCLOSPORINE [Concomitant]
  4. SIMULECT [Concomitant]

REACTIONS (5)
  - BRONCHOPULMONARY ASPERGILLOSIS [None]
  - CARDIOMYOPATHY [None]
  - DISEASE RECURRENCE [None]
  - HEPATIC FAILURE [None]
  - HEPATITIS C [None]
